FAERS Safety Report 6151033-9 (Version None)
Quarter: 2009Q2

REPORT INFORMATION
  Report Type: 
  Country: None (occurrence: None)
  Receive Date: 20090410
  Receipt Date: 20090306
  Transmission Date: 20091009
  Serious: No
  Sender: FDA-Public Use
  Company Number: A0771871A

PATIENT
  Age: 47 Year
  Sex: Female

DRUGS (5)
  1. TYKERB [Suspect]
     Indication: BREAST CANCER
     Dosage: 4TAB PER DAY
     Route: 048
  2. HERCEPTIN [Concomitant]
  3. ZOMETA [Concomitant]
  4. LEXAPRO [Concomitant]
  5. PRILOSEC [Concomitant]

REACTIONS (13)
  - DIARRHOEA [None]
  - FATIGUE [None]
  - GAIT DISTURBANCE [None]
  - HYPOAESTHESIA [None]
  - ILL-DEFINED DISORDER [None]
  - NAUSEA [None]
  - PAIN IN EXTREMITY [None]
  - PRURITUS [None]
  - RASH [None]
  - RETCHING [None]
  - SKIN CHAPPED [None]
  - VOMITING [None]
  - WOUND [None]
